FAERS Safety Report 16141680 (Version 1)
Quarter: 2019Q2

REPORT INFORMATION
  Report Type: Spontaneous
  Country: US (occurrence: US)
  Receive Date: 20190323
  Receipt Date: 20190323
  Transmission Date: 20190711
  Serious: No
  Sender: FDA-Public Use
  Company Number: None

PATIENT
  Age: 67 Year
  Sex: Female
  Weight: 58.97 kg

DRUGS (6)
  1. BIOTIN [Concomitant]
     Active Substance: BIOTIN
  2. MULTI-VITAMIN [Concomitant]
     Active Substance: .ALPHA.-TOCOPHEROL ACETATE, DL-\ASCORBIC ACID\CYANOCOBALAMIN\FLUORIDE ION\FOLIC ACID\NIACIN\PYRIDOXINE\RIBOFLAVIN\THIAMINE\VITAMIN A\VITAMIN D
  3. VITAMIN D NOS [Concomitant]
     Active Substance: VITAMIN D NOS
  4. ARNICA MONTANA. [Concomitant]
     Active Substance: HOMEOPATHICS
  5. METOPROLOL SUCCINATE. [Concomitant]
     Active Substance: METOPROLOL SUCCINATE
  6. AQUAPHOR [Suspect]
     Active Substance: PETROLATUM
     Indication: DRY SKIN
     Dosage: APPLIED TO A SURFACE, USUALLY THE SKIN
     Dates: start: 20190228, end: 20190313

REACTIONS (5)
  - Injury associated with device [None]
  - Foreign body reaction [None]
  - Dermatitis allergic [None]
  - Rash papular [None]
  - Procedural complication [None]

NARRATIVE: CASE EVENT DATE: 20190228
